FAERS Safety Report 10045627 (Version 1)
Quarter: 2014Q1

REPORT INFORMATION
  Report Type: Spontaneous
  Country: US (occurrence: US)
  Receive Date: 20140328
  Receipt Date: 20140328
  Transmission Date: 20141002
  Serious: No
  Sender: FDA-Public Use
  Company Number: US-009507513-1403USA008346

PATIENT
  Age: 62 Year
  Sex: Male

DRUGS (15)
  1. PEGINTRON [Suspect]
     Indication: HEPATITIS C
     Dosage: 0.4 ML, QW, REDIPEN
     Route: 058
     Dates: start: 20140307
  2. REBETOL [Suspect]
     Dosage: 1 DF, BID
     Route: 048
     Dates: start: 20140307
  3. SOVALDI [Concomitant]
     Dosage: 400 MG, QD
     Route: 048
  4. ZOLOFT [Concomitant]
     Dosage: 100 MG, QD
  5. WELLBUTRIN [Concomitant]
     Dosage: 75 MG, QD
  6. MYSOLINE [Concomitant]
     Dosage: 50 MG, TID
  7. NORVASC [Concomitant]
     Dosage: 5 MG, QD
  8. BETAPACE [Concomitant]
     Dosage: 80 MG, BID
  9. COUMADIN [Concomitant]
     Dosage: 1 DAILY EXCEPT WEDNESDAY
  10. COUMADIN [Concomitant]
     Dosage: 1/2 TAB ON WEDNESDAY
  11. PLAVIX [Concomitant]
     Dosage: 75 MG, QD
  12. HYZAAR [Concomitant]
     Dosage: UNK, QD
  13. DILTIAZEM HYDROCHLORIDE [Concomitant]
     Dosage: 120 MG, QD
  14. PROTONIX [Concomitant]
     Dosage: ONE TABLET 30 MINUTES BEFORE FOOD IN THE MORNING
  15. NEURONTIN [Concomitant]
     Dosage: TWO PILLS THREE TIMES A DAY

REACTIONS (5)
  - Dry skin [Unknown]
  - Injection site reaction [Unknown]
  - Injection site erythema [Unknown]
  - Nausea [Unknown]
  - Asthenia [Unknown]
